FAERS Safety Report 19477571 (Version 2)
Quarter: 2021Q3

REPORT INFORMATION
  Report Type: Spontaneous
  Country: JP (occurrence: JP)
  Receive Date: 20210630
  Receipt Date: 20210915
  Transmission Date: 20211014
  Serious: Yes (Other)
  Sender: FDA-Public Use
  Company Number: JP-EISAI MEDICAL RESEARCH-EC-2021-095146

PATIENT
  Sex: Male

DRUGS (2)
  1. ERIBULIN [Suspect]
     Active Substance: ERIBULIN
     Indication: SOFT TISSUE SARCOMA
     Route: 042
  2. ERIBULIN [Suspect]
     Active Substance: ERIBULIN
     Dosage: DOSE UNKNOWN
     Route: 042

REACTIONS (5)
  - Cardiac failure [Recovered/Resolved]
  - Peripheral motor neuropathy [Not Recovered/Not Resolved]
  - Arrhythmia [Recovered/Resolved]
  - Peripheral sensory neuropathy [Recovered/Resolved]
  - Atrial fibrillation [Recovered/Resolved]
